FAERS Safety Report 5751027-9 (Version None)
Quarter: 2008Q2

REPORT INFORMATION
  Report Type: 
  Country: None (occurrence: None)
  Receive Date: 20080528
  Receipt Date: 20080520
  Transmission Date: 20081010
  Serious: No
  Sender: FDA-Public Use
  Company Number: US-ASTRAZENECA-2008UW08421

PATIENT
  Age: 19 Year
  Sex: Female

DRUGS (8)
  1. SYMBICORT [Suspect]
     Route: 055
  2. XYZAL [Concomitant]
  3. NASACORT AQ [Concomitant]
  4. SINGULAIR [Concomitant]
  5. ALBUTEROL [Concomitant]
  6. MINOCYCLINE HCL [Concomitant]
  7. CLEOCIN T [Concomitant]
  8. NUVARING [Concomitant]

REACTIONS (4)
  - ANXIETY [None]
  - DYSPNOEA [None]
  - PALLOR [None]
  - TACHYCARDIA [None]
